FAERS Safety Report 26190575 (Version 1)
Quarter: 2025Q4

REPORT INFORMATION
  Report Type: Spontaneous
  Country: EU (occurrence: EU)
  Receive Date: 20251223
  Receipt Date: 20251223
  Transmission Date: 20260117
  Serious: Yes (Hospitalization)
  Sender: BAUSCH AND LOMB
  Company Number: EU-PROCTER-GAMBLE-PH25021201

PATIENT
  Age: 40 Year
  Sex: Female
  Weight: 40 kg

DRUGS (11)
  1. METFORMIN [Suspect]
     Active Substance: METFORMIN HYDROCHLORIDE
     Indication: Product used for unknown indication
     Dosage: 1 TABLET (MIX-UP), ORAL, CERTAIN EXPOSURE-METFORMIN 500
     Route: 048
     Dates: start: 20251202
  2. CHOLECALCIFEROL [Suspect]
     Active Substance: CHOLECALCIFEROL
     Indication: Product used for unknown indication
     Dosage: 1 TABLET, VITAMIN D3, (LONG-TERM MEDICATION), ORAL, CERTAIN EXPOSURE
     Route: 048
     Dates: start: 20251202
  3. FUROSEMIDE [Suspect]
     Active Substance: FUROSEMIDE
     Indication: Product used for unknown indication
     Dosage: 1 TABLET (MIX-UP), ORAL, CERTAIN EXPOSURE-FUROSEMIDE 40
     Route: 048
     Dates: start: 20251202
  4. JARDIANCE [Suspect]
     Active Substance: EMPAGLIFLOZIN
     Indication: Product used for unknown indication
     Dosage: 1 TABLET (MIX-UP), ORAL, CERTAIN EXPOSURE-JARDIANCE 10
     Route: 048
     Dates: start: 20251202
  5. LISINOPRIL [Suspect]
     Active Substance: LISINOPRIL
     Indication: Product used for unknown indication
     Dosage: 1 TABLET (MIX-UP), ORAL, CERTAIN EXPOSURE-LISINOPRIL 5
     Route: 048
     Dates: start: 20251202
  6. METOPROLOL [Suspect]
     Active Substance: METOPROLOL
     Indication: Product used for unknown indication
     Dosage: 1 TABLET (MIX-UP), ORAL, CERTAIN EXPOSURE-METOPROLOL 50
     Route: 048
     Dates: start: 20251202
  7. RISPERIDONE [Suspect]
     Active Substance: RISPERIDONE
     Indication: Product used for unknown indication
     Dosage: 1 TABLET (MIX-UP), ORAL, CERTAIN EXPOSURE - RISPERIDONE 0.5 MG
     Route: 048
     Dates: start: 20251202
  8. SERTRALINE [Suspect]
     Active Substance: SERTRALINE HYDROCHLORIDE
     Indication: Product used for unknown indication
     Dosage: 150 MILLIGRAM, (MIX-UP), ORAL, CERTAIN EXPOSURE
     Route: 048
     Dates: start: 20251202
  9. LAMOTRIGINE [Suspect]
     Active Substance: LAMOTRIGINE
     Indication: Product used for unknown indication
     Dosage: 150 MILLIGRAM, (LONG-TERM MEDICATION), ORAL, CERTAIN EXPOSURE
     Route: 048
     Dates: start: 20251202
  10. VALPROATE SODIUM [Suspect]
     Active Substance: VALPROATE SODIUM
     Indication: Product used for unknown indication
     Dosage: 1 TABLET (LONG-TERM MEDICATION), ORAL, CERTAIN EXPOSURE-VALPROAT 500 MG
     Route: 048
     Dates: start: 20251202
  11. FRESUBIN [CARBOHYDRATES NOS;FATTY ACIDS NOS;MINERALS NOS;PROTEINS NOS] [Concomitant]
     Indication: Product used for unknown indication
     Dosage: UNK
     Route: 065

REACTIONS (1)
  - Hypotension [Unknown]

NARRATIVE: CASE EVENT DATE: 20251202
